FAERS Safety Report 8030352-5 (Version None)
Quarter: 2012Q1

REPORT INFORMATION
  Report Type: 
  Country: None (occurrence: None)
  Receive Date: 20120109
  Receipt Date: 20120103
  Transmission Date: 20120608
  Serious: Yes (Death, Other)
  Sender: FDA-Public Use
  Company Number: US-BAYER-2011-039730

PATIENT
  Age: 38 Year
  Sex: Female
  Weight: 79.365 kg

DRUGS (4)
  1. APATRIM [Concomitant]
     Indication: WEIGHT DECREASED
     Dosage: UNK UNK, QD
     Dates: start: 20100101
  2. YAZ [Suspect]
     Dosage: UNK
     Dates: start: 20090901, end: 20100131
  3. ZYRTEC [Concomitant]
     Indication: URTICARIA
     Dosage: UNK UNK, QD
     Dates: start: 20091001, end: 20100131
  4. YAZ [Suspect]
     Indication: CONTRACEPTION
     Dosage: UNK
     Dates: start: 20080601

REACTIONS (8)
  - INJURY [None]
  - PAIN [None]
  - ANXIETY [None]
  - EMOTIONAL DISTRESS [None]
  - LOSS OF CONSCIOUSNESS [None]
  - GENERAL PHYSICAL HEALTH DETERIORATION [None]
  - CHEST PAIN [None]
  - CORONARY ARTERY THROMBOSIS [None]
